FAERS Safety Report 11267819 (Version 2)
Quarter: 2015Q3

REPORT INFORMATION
  Report Type: Report from Study
  Country: TW (occurrence: TW)
  Receive Date: 20150713
  Receipt Date: 20150724
  Transmission Date: 20151125
  Serious: Yes (Death, Hospitalization)
  Sender: FDA-Public Use
  Company Number: TW-BRISTOL-MYERS SQUIBB COMPANY-BMS-2015-044802

PATIENT
  Age: 73 Year
  Sex: Male
  Weight: 60 kg

DRUGS (2)
  1. CETUXIMAB [Suspect]
     Active Substance: CETUXIMAB
     Indication: SQUAMOUS CELL CARCINOMA OF THE HYPOPHARYNX
     Dosage: 650 MG, UNK
     Route: 065
     Dates: start: 20150520, end: 20150624
  2. CETUXIMAB [Suspect]
     Active Substance: CETUXIMAB
     Dosage: 400 MG, QWK
     Route: 065
     Dates: end: 20150624

REACTIONS (13)
  - Dizziness [Unknown]
  - Odynophagia [Unknown]
  - Hypotension [Unknown]
  - Decreased appetite [Unknown]
  - Pneumonia [Fatal]
  - Dysphagia [Unknown]
  - Stomatitis [Unknown]
  - Skin reaction [Unknown]
  - Blood urea increased [Fatal]
  - Dehydration [Fatal]
  - Malnutrition [Unknown]
  - Oropharyngeal pain [Unknown]
  - Dysphonia [Unknown]

NARRATIVE: CASE EVENT DATE: 20150617
